FAERS Safety Report 6527074-6 (Version None)
Quarter: 2010Q1

REPORT INFORMATION
  Report Type: 
  Country: None (occurrence: None)
  Receive Date: 20100105
  Receipt Date: 20100104
  Transmission Date: 20100710
  Serious: Yes (Death, Hospitalization, Other)
  Sender: FDA-Public Use
  Company Number: US-ROXANE LABORATORIES, INC.-2010-RO-00002RO

PATIENT
  Sex: Female

DRUGS (7)
  1. PREDNISONE [Suspect]
     Indication: RENAL TRANSPLANT
     Dosage: 5 MG
     Route: 048
     Dates: start: 20090224
  2. BELATACEPT [Suspect]
     Indication: RENAL TRANSPLANT
     Route: 042
     Dates: start: 20070315
  3. BELATACEPT [Suspect]
     Route: 042
     Dates: start: 20091123
  4. CELLCEPT [Suspect]
     Indication: RENAL TRANSPLANT
     Dosage: 2000 MG
     Route: 048
     Dates: start: 20070315
  5. WARFARIN SODIUM [Concomitant]
     Dates: start: 20091021
  6. CLOPIDOGREL [Concomitant]
     Dates: start: 20091112
  7. FUROSEMIDE [Concomitant]
     Dates: start: 20090504

REACTIONS (4)
  - ANOXIC ENCEPHALOPATHY [None]
  - CARDIAC ARREST [None]
  - CELLULITIS [None]
  - URINARY TRACT INFECTION [None]
